FAERS Safety Report 8603950 (Version 2)
Quarter: 2013Q3

REPORT INFORMATION
  Report Type: Spontaneous
  Country: US (occurrence: US)
  Receive Date: 20120608
  Receipt Date: 20130722
  Transmission Date: 20140515
  Serious: Yes (Hospitalization, Disabling)
  Sender: FDA-Public Use
  Company Number: US-ASTRAZENECA-2012SE34985

PATIENT
  Age: 615 Month
  Sex: Female
  Weight: 98.9 kg

DRUGS (17)
  1. NEXIUM [Suspect]
     Indication: DYSPEPSIA
     Dosage: 2 TIMES DAILY
     Route: 048
     Dates: start: 2000, end: 2010
  2. NEXIUM [Suspect]
     Indication: GASTROOESOPHAGEAL REFLUX DISEASE
     Dosage: 2 TIMES DAILY
     Route: 048
     Dates: start: 2000, end: 2010
  3. OMEPRAZOLE [Suspect]
     Route: 048
     Dates: start: 2000, end: 2010
  4. OMEPRAZOLE [Suspect]
     Route: 048
     Dates: start: 20121208
  5. PREVACID [Concomitant]
     Dates: start: 2000, end: 2010
  6. TRAMADOL [Concomitant]
     Indication: PAIN
     Dosage: 50 MG 1-2 TABLETS BY MOUTH EVERY 6 HOURS AS NEEDED
     Route: 048
  7. LORATADINE [Concomitant]
     Route: 048
  8. CALCIUM CARBONATE [Concomitant]
     Route: 048
  9. METRONIDAZOLE [Concomitant]
  10. PENICILLIN V POTASSIUM [Concomitant]
  11. HYDROCODONE IBRUPOFEN [Concomitant]
     Dosage: 5-200 MG TAKE 1-2 TABLET BY MOUTH EVERY 6 HOURS AS NEEDED
  12. FENOFIBRATE [Concomitant]
  13. COMBIVENT [Concomitant]
  14. MONTELUKAST [Concomitant]
  15. ZOLPIDEM [Concomitant]
  16. EFFEXOR [Concomitant]
  17. VICODIN [Concomitant]
     Indication: PAIN
     Dosage: 5-500 MG PER TABLET EVERY SIX HOURS AS NEEDED

REACTIONS (14)
  - Asthma [Unknown]
  - Rheumatoid arthritis [Unknown]
  - Emphysema [Unknown]
  - Sarcoidosis [Unknown]
  - Respiratory disorder [Unknown]
  - Osteoporosis [Unknown]
  - Bone density decreased [Unknown]
  - Rib fracture [Unknown]
  - Calcium deficiency [Unknown]
  - Arthritis [Unknown]
  - Chronic obstructive pulmonary disease [Unknown]
  - Diabetes mellitus [Unknown]
  - Vitamin D deficiency [Unknown]
  - Depression [Unknown]
